FAERS Safety Report 6419446-5 (Version None)
Quarter: 2009Q4

REPORT INFORMATION
  Report Type: 
  Country: None (occurrence: None)
  Receive Date: 20091013
  Receipt Date: 20090603
  Transmission Date: 20100525
  Serious: Yes (Other)
  Sender: FDA-Public Use
  Company Number: 1000006486

PATIENT
  Age: 23 Year
  Sex: Female

DRUGS (6)
  1. LEXAPRO [Suspect]
     Indication: PRESYNCOPE
     Dosage: 10 MG (10 MG, 1 IN 1 D), ORAL, 5 MG (5 MG, 1 IN 1 D), ORAL
     Route: 048
     Dates: start: 20080401, end: 20080801
  2. LEXAPRO [Suspect]
     Indication: PRESYNCOPE
     Dosage: 10 MG (10 MG, 1 IN 1 D), ORAL, 5 MG (5 MG, 1 IN 1 D), ORAL
     Route: 048
     Dates: start: 20080801
  3. TOPROL-XL [Concomitant]
  4. FLORINEF [Concomitant]
  5. VITAMINS [Concomitant]
  6. PEPCID [Concomitant]

REACTIONS (1)
  - SUICIDAL IDEATION [None]
